FAERS Safety Report 13086096 (Version 2)
Quarter: 2017Q1

REPORT INFORMATION
  Report Type: Spontaneous
  Country: US (occurrence: US)
  Receive Date: 20170104
  Receipt Date: 20170106
  Transmission Date: 20170428
  Serious: Yes (Death)
  Sender: FDA-Public Use
  Company Number: US-BAYER-2017-000845

PATIENT
  Age: 67 Year
  Sex: Female

DRUGS (11)
  1. ACTIVATED CHARCOAL [Suspect]
     Active Substance: ACTIVATED CHARCOAL
  2. OXYCODONE [Suspect]
     Active Substance: OXYCODONE
  3. LAMOTRIGINE. [Suspect]
     Active Substance: LAMOTRIGINE
  4. VENLAFAXINE [Suspect]
     Active Substance: VENLAFAXINE HYDROCHLORIDE
     Dosage: UNK
  5. BUPROPION. [Suspect]
     Active Substance: BUPROPION
     Dosage: UNK
  6. ARIPIPRAZOLE. [Suspect]
     Active Substance: ARIPIPRAZOLE
  7. BUSPIRONE [Suspect]
     Active Substance: BUSPIRONE HYDROCHLORIDE
  8. TRAZODONE [Suspect]
     Active Substance: TRAZODONE HYDROCHLORIDE
  9. CIPROFLOXACIN. [Suspect]
     Active Substance: CIPROFLOXACIN
     Route: 048
  10. PREDNISONE. [Suspect]
     Active Substance: PREDNISONE
  11. ZALEPLON. [Suspect]
     Active Substance: ZALEPLON

REACTIONS (1)
  - Toxicity to various agents [Fatal]
